FAERS Safety Report 25829674 (Version 1)
Quarter: 2025Q3

REPORT INFORMATION
  Report Type: Spontaneous
  Country: ID (occurrence: ID)
  Receive Date: 20250922
  Receipt Date: 20250922
  Transmission Date: 20251021
  Serious: Yes (Other)
  Sender: BAXTER
  Company Number: ID-MLMSERVICE-20250910-PI642322-00123-1

PATIENT
  Age: 43 Year
  Sex: Female

DRUGS (2)
  1. DOXORUBICIN [Suspect]
     Active Substance: DOXORUBICIN
     Indication: Invasive ductal breast carcinoma
     Route: 065
  2. DOCETAXEL [Suspect]
     Active Substance: DOCETAXEL
     Indication: Invasive ductal breast carcinoma
     Route: 065

REACTIONS (9)
  - Cardiac failure chronic [Unknown]
  - Tachypnoea [Unknown]
  - Cardiac ventricular thrombosis [Unknown]
  - Tricuspid valve incompetence [Unknown]
  - Mitral valve incompetence [Unknown]
  - Dilatation atrial [Unknown]
  - Cardiotoxicity [Unknown]
  - Cardiomyopathy [Unknown]
  - Dilatation ventricular [Unknown]
